FAERS Safety Report 17652149 (Version 2)
Quarter: 2020Q2

REPORT INFORMATION
  Report Type: Spontaneous
  Country: CA (occurrence: CA)
  Receive Date: 20200409
  Receipt Date: 20200616
  Transmission Date: 20200713
  Serious: Yes (Death)
  Sender: FDA-Public Use
  Company Number: NVSC2020CA094671

PATIENT
  Age: 62 Year
  Sex: Male

DRUGS (2)
  1. PAMIDRONATE DISODIUM. [Suspect]
     Active Substance: PAMIDRONATE DISODIUM
     Indication: RENAL CELL CARCINOMA
     Dosage: UNK
     Route: 042
  2. ZOMETA [Suspect]
     Active Substance: ZOLEDRONIC ACID
     Indication: RENAL CELL CARCINOMA
     Dosage: 4 MG, CYCLIC
     Route: 042

REACTIONS (7)
  - Death [Fatal]
  - Therapeutic response decreased [Fatal]
  - Confusional state [Fatal]
  - Hypercalcaemia [Fatal]
  - Hyperalbuminaemia [Fatal]
  - Heart rate increased [Fatal]
  - Somnolence [Fatal]
